FAERS Safety Report 9885023 (Version 1)
Quarter: 2014Q1

REPORT INFORMATION
  Report Type: Spontaneous
  Country: IT (occurrence: IT)
  Receive Date: 20140210
  Receipt Date: 20140210
  Transmission Date: 20141002
  Serious: Yes (Other)
  Sender: FDA-Public Use
  Company Number: IT-JNJFOC-20140202451

PATIENT
  Age: 54 Year
  Sex: Male

DRUGS (4)
  1. HALDOL [Suspect]
     Indication: PRODUCT USED FOR UNKNOWN INDICATION
     Dosage: DOSE:10 MG/ML
     Route: 048
     Dates: start: 20140203, end: 20140203
  2. AKINETON [Suspect]
     Indication: PRODUCT USED FOR UNKNOWN INDICATION
     Route: 048
     Dates: start: 20140203, end: 20140203
  3. TEGRETOL [Suspect]
     Indication: PRODUCT USED FOR UNKNOWN INDICATION
     Route: 048
     Dates: start: 20140203, end: 20140203
  4. LARGACTIL [Suspect]
     Indication: PRODUCT USED FOR UNKNOWN INDICATION
     Route: 065
     Dates: start: 20140203, end: 20140203

REACTIONS (2)
  - Self injurious behaviour [Unknown]
  - Sopor [Unknown]
